FAERS Safety Report 6964094-1 (Version None)
Quarter: 2010Q3

REPORT INFORMATION
  Report Type: 
  Country: None (occurrence: None)
  Receive Date: 20100902
  Receipt Date: 20100820
  Transmission Date: 20110219
  Serious: Yes (Death)
  Sender: FDA-Public Use
  Company Number: US-MYLANLABS-2010S1014310

PATIENT
  Age: 55 Year
  Sex: Male
  Weight: 68.95 kg

DRUGS (1)
  1. CLOZAPINE [Suspect]
     Route: 048

REACTIONS (4)
  - GRANULOCYTOPENIA [None]
  - LEUKOPENIA [None]
  - PNEUMONIA ASPIRATION [None]
  - SEPSIS [None]
